FAERS Safety Report 21746092 (Version 3)
Quarter: 2025Q2

REPORT INFORMATION
  Report Type: Report from Study
  Country: US (occurrence: US)
  Receive Date: 20221219
  Receipt Date: 20250628
  Transmission Date: 20250717
  Serious: Yes (Other)
  Sender: TAKEDA
  Company Number: US-SHIRE-US202008210

PATIENT
  Sex: Male

DRUGS (2)
  1. HUMAN IMMUNOGLOBULIN G\HYALURONIDASE RECOMBINANT HUMAN [Suspect]
     Active Substance: HUMAN IMMUNOGLOBULIN G\HYALURONIDASE (HUMAN RECOMBINANT)
     Indication: IgG deficiency
  2. HUMAN IMMUNOGLOBULIN G\HYALURONIDASE RECOMBINANT HUMAN [Suspect]
     Active Substance: HUMAN IMMUNOGLOBULIN G\HYALURONIDASE (HUMAN RECOMBINANT)
     Indication: Primary immunodeficiency syndrome

REACTIONS (14)
  - Loss of consciousness [Unknown]
  - Acetabulum fracture [Unknown]
  - Diabetes mellitus inadequate control [Unknown]
  - Mast cell activation syndrome [Unknown]
  - Hepatic steatosis [Unknown]
  - Road traffic accident [Unknown]
  - Gait inability [Unknown]
  - Viral infection [Unknown]
  - Product use issue [Unknown]
  - Insurance issue [Unknown]
  - Multiple allergies [Unknown]
  - Cognitive disorder [Unknown]
  - Blood pressure abnormal [Unknown]
  - Eczema [Unknown]
